FAERS Safety Report 9735752 (Version 2)
Quarter: 2015Q3

REPORT INFORMATION
  Report Type: Spontaneous
  Country: US (occurrence: US)
  Receive Date: 20131206
  Receipt Date: 20150804
  Transmission Date: 20151125
  Serious: No
  Sender: FDA-Public Use
  Company Number: US-GILEAD-2009-0022685

PATIENT
  Age: 59 Year
  Sex: Female
  Weight: 83.91 kg

DRUGS (10)
  1. LASIX [Concomitant]
     Active Substance: FUROSEMIDE
  2. ALBUTEROL. [Concomitant]
     Active Substance: ALBUTEROL
  3. ADVAIR HFA [Concomitant]
     Active Substance: FLUTICASONE PROPIONATE\SALMETEROL XINAFOATE
  4. CALCIUM +D [Concomitant]
     Active Substance: CALCIUM\VITAMIN D
  5. VITAMIN B [Concomitant]
     Active Substance: VITAMIN B
  6. LETAIRIS [Suspect]
     Active Substance: AMBRISENTAN
     Indication: PULMONARY ARTERIAL HYPERTENSION
     Route: 048
     Dates: start: 20090617
  7. POTASSIUM [Concomitant]
     Active Substance: POTASSIUM
  8. DIOVAN HCT [Concomitant]
     Active Substance: HYDROCHLOROTHIAZIDE\VALSARTAN
  9. MULTI 50+ TAB FOR HER [Concomitant]
  10. SPIRIVA [Concomitant]
     Active Substance: TIOTROPIUM BROMIDE MONOHYDRATE

REACTIONS (2)
  - Pollakiuria [Not Recovered/Not Resolved]
  - Cough [Not Recovered/Not Resolved]

NARRATIVE: CASE EVENT DATE: 20090618
